FAERS Safety Report 20289009 (Version 2)
Quarter: 2022Q2

REPORT INFORMATION
  Report Type: Report from Study
  Country: FR (occurrence: FR)
  Receive Date: 20220104
  Receipt Date: 20220411
  Transmission Date: 20220721
  Serious: Yes (Other)
  Sender: FDA-Public Use
  Company Number: FR-ABBVIE-21K-056-4076064-00

PATIENT
  Age: 74 Year
  Sex: Male
  Weight: 58.1 kg

DRUGS (4)
  1. CARBIDOPA\LEVODOPA [Suspect]
     Active Substance: CARBIDOPA\LEVODOPA
     Indication: Parkinson^s disease
     Dosage: MORNING DOSE: 8 ML; CFR (DURING THE DAY): 3 ML/H; ED: 3 ML (3 PER DAY)
     Route: 050
     Dates: start: 202008, end: 2022
  2. CARBIDOPA\LEVODOPA [Suspect]
     Active Substance: CARBIDOPA\LEVODOPA
     Route: 050
     Dates: start: 2022
  3. CLOZAPINE [Concomitant]
     Active Substance: CLOZAPINE
     Indication: Product used for unknown indication
  4. CYMBALTA [Concomitant]
     Active Substance: DULOXETINE HYDROCHLORIDE
     Indication: Product used for unknown indication
     Dosage: 60 MG + 30 MG
     Dates: start: 2020

REACTIONS (11)
  - Cognitive disorder [Not Recovered/Not Resolved]
  - Behaviour disorder [Recovering/Resolving]
  - Dementia [Not Recovered/Not Resolved]
  - Eating disorder [Unknown]
  - Disturbance in attention [Recovering/Resolving]
  - Fall [Unknown]
  - Wound [Unknown]
  - Weight decreased [Recovering/Resolving]
  - On and off phenomenon [Not Recovered/Not Resolved]
  - Memory impairment [Not Recovered/Not Resolved]
  - Apathy [Not Recovered/Not Resolved]

NARRATIVE: CASE EVENT DATE: 20210101
